FAERS Safety Report 5908123-2 (Version None)
Quarter: 2008Q4

REPORT INFORMATION
  Report Type: 
  Country: None (occurrence: None)
  Receive Date: 20081003
  Receipt Date: 20080923
  Transmission Date: 20090506
  Serious: Yes (Hospitalization)
  Sender: FDA-Public Use
  Company Number: US-PFIZER INC-2008081234

PATIENT
  Sex: Male
  Weight: 74 kg

DRUGS (19)
  1. DOXORUBICIN HCL [Suspect]
     Indication: DIFFUSE LARGE B-CELL LYMPHOMA
     Route: 042
     Dates: start: 20080611
  2. PREDNISONE [Suspect]
     Indication: DIFFUSE LARGE B-CELL LYMPHOMA
     Route: 048
     Dates: start: 20080611
  3. CYCLOPHOSPHAMIDE [Suspect]
     Indication: DIFFUSE LARGE B-CELL LYMPHOMA
     Route: 042
     Dates: start: 20080611
  4. VINCRISTINE [Suspect]
     Indication: DIFFUSE LARGE B-CELL LYMPHOMA
     Route: 042
     Dates: start: 20080611
  5. ENZASTAURINE [Suspect]
     Indication: DIFFUSE LARGE B-CELL LYMPHOMA
     Dosage: DAILY DOSE:1125MG
     Route: 048
     Dates: start: 20080612, end: 20080612
  6. ENZASTAURINE [Suspect]
     Dosage: DAILY DOSE:500MG-FREQ:DAILY
     Route: 048
     Dates: start: 20080613
  7. RITUXIMAB [Suspect]
     Indication: DIFFUSE LARGE B-CELL LYMPHOMA
     Dosage: DAILY DOSE:375MG/M2
     Route: 042
     Dates: start: 20080611
  8. BUSPAR [Concomitant]
  9. LORTAB [Concomitant]
     Dates: start: 20080509
  10. ASPIRIN [Concomitant]
  11. IMIPRAMINE [Concomitant]
  12. FISH OIL [Concomitant]
  13. ZOFRAN [Concomitant]
     Dates: start: 20080611
  14. COMPAZINE [Concomitant]
     Dates: start: 20080611
  15. LEVAQUIN [Concomitant]
     Dates: start: 20080622
  16. MEGACE [Concomitant]
  17. SOLIFENACIN [Concomitant]
  18. POTASSIUM CHLORIDE [Concomitant]
  19. CALCIUM PHOSPHATE [Concomitant]
     Dates: start: 20080618

REACTIONS (2)
  - NEUROPATHY PERIPHERAL [None]
  - URINARY TRACT INFECTION [None]
